FAERS Safety Report 6545024-3 (Version None)
Quarter: 2010Q1

REPORT INFORMATION
  Report Type: 
  Country: None (occurrence: None)
  Receive Date: 20100121
  Receipt Date: 20100118
  Transmission Date: 20100710
  Serious: Yes (Other)
  Sender: FDA-Public Use
  Company Number: A0840506A

PATIENT
  Age: 59 Year
  Sex: Female

DRUGS (5)
  1. ADVAIR [Suspect]
     Indication: ASTHMA
     Route: 055
     Dates: start: 20090101
  2. SINGULAIR [Suspect]
     Indication: ASTHMA
  3. PREDNISONE [Concomitant]
  4. INHALER [Concomitant]
  5. CONCURRENT MEDICATIONS [Concomitant]

REACTIONS (11)
  - ADVERSE DRUG REACTION [None]
  - ASTHMA [None]
  - BRONCHITIS [None]
  - CIRCULATORY COLLAPSE [None]
  - DYSPNOEA [None]
  - FALL [None]
  - MUSCLE SPASMS [None]
  - MYALGIA [None]
  - NASOPHARYNGITIS [None]
  - PNEUMONIA [None]
  - RESPIRATORY DISORDER [None]
